FAERS Safety Report 10498584 (Version 2)
Quarter: 2014Q4

REPORT INFORMATION
  Report Type: Spontaneous
  Country: US (occurrence: US)
  Receive Date: 20141006
  Receipt Date: 20141009
  Transmission Date: 20150528
  Serious: Yes (Other)
  Sender: FDA-Public Use
  Company Number: US-TEVA-513499USA

PATIENT
  Sex: Female

DRUGS (2)
  1. HYDROCODONE W/IBUPROFEN [Suspect]
     Active Substance: HYDROCODONE\HYDROCODONE BITARTRATE\IBUPROFEN
     Indication: BACK PAIN
     Dosage: 2 TABLET DAILY; 7.5-200
     Dates: start: 201403
  2. HYDROCODONE W/IBUPROFEN [Suspect]
     Active Substance: HYDROCODONE\HYDROCODONE BITARTRATE\IBUPROFEN
     Indication: GOUTY ARTHRITIS

REACTIONS (9)
  - Gait disturbance [Unknown]
  - Fear [Unknown]
  - Drug dependence [Unknown]
  - Drug ineffective [Unknown]
  - Vertigo [Unknown]
  - Disturbance in attention [Unknown]
  - Overdose [Unknown]
  - Vision blurred [Unknown]
  - Product quality issue [Unknown]

NARRATIVE: CASE EVENT DATE: 20140905
